FAERS Safety Report 10785903 (Version 1)
Quarter: 2015Q1

REPORT INFORMATION
  Report Type: Spontaneous
  Country: US (occurrence: None)
  Receive Date: 20150210
  Receipt Date: 20150210
  Transmission Date: 20150721
  Serious: No
  Sender: FDA-Public Use
  Company Number: None

PATIENT
  Age: 63 Year
  Sex: Female

DRUGS (23)
  1. PROAIR HFA [Concomitant]
     Active Substance: ALBUTEROL SULFATE
  2. XELJANZ [Suspect]
     Active Substance: TOFACITINIB CITRATE
     Indication: RHEUMATOID ARTHRITIS
     Dosage: 1 TABLET
     Route: 048
  3. CRANBERRY. [Concomitant]
     Active Substance: CRANBERRY
  4. FLUTICASONE PROPIONATE. [Concomitant]
     Active Substance: FLUTICASONE PROPIONATE
  5. CHONDROITIN SULFATE (BOVINE)\GLUCOSAMINE SULFATE [Concomitant]
     Active Substance: CHONDROITIN SULFATE (BOVINE)\GLUCOSAMINE SULFATE
  6. SCOPALAMINE BUTYLBROMIDE (HYOSCINE BUTYLBROMIDE) [Concomitant]
     Active Substance: BUTYLSCOPOLAMINE BROMIDE
  7. HYDROCHLOROTHIAZIDE AND LISINOPRIL [Concomitant]
     Active Substance: HYDROCHLOROTHIAZIDE\LISINOPRIL
  8. MULTI-V [Concomitant]
  9. TRAZODONE [Concomitant]
     Active Substance: TRAZODONE HYDROCHLORIDE
  10. VENLAFAXINE [Concomitant]
     Active Substance: VENLAFAXINE HYDROCHLORIDE
  11. FIBER [Concomitant]
     Active Substance: PSYLLIUM HUSK
  12. CALCIUM [Concomitant]
     Active Substance: CALCIUM
  13. ADVAIR HFA [Concomitant]
     Active Substance: FLUTICASONE PROPIONATE\SALMETEROL XINAFOATE
  14. BIOTIN [Concomitant]
     Active Substance: BIOTIN
  15. IRON [Concomitant]
     Active Substance: IRON
  16. LEFLUNOMID [Concomitant]
     Active Substance: LEFLUNOMIDE
  17. PREMARIN [Concomitant]
     Active Substance: ESTROGENS, CONJUGATED
  18. PROMETHAZINE [Concomitant]
     Active Substance: PROMETHAZINE\PROMETHAZINE HYDROCHLORIDE
  19. ZVRTEC [Concomitant]
  20. ASA [Concomitant]
     Active Substance: ASPIRIN
  21. OMEPRAZOLE. [Concomitant]
     Active Substance: OMEPRAZOLE
  22. RANITIDINE [Concomitant]
     Active Substance: RANITIDINE\RANITIDINE HYDROCHLORIDE
  23. TRAMADOL [Concomitant]
     Active Substance: TRAMADOL

REACTIONS (2)
  - Secretion discharge [None]
  - Respiratory disorder [None]

NARRATIVE: CASE EVENT DATE: 20150209
